FAERS Safety Report 7450266-9 (Version None)
Quarter: 2011Q2

REPORT INFORMATION
  Report Type: 
  Country: None (occurrence: None)
  Receive Date: 20110428
  Receipt Date: 20110428
  Transmission Date: 20111010
  Serious: Yes (Other)
  Sender: FDA-Public Use
  Company Number: None

PATIENT
  Sex: Female
  Weight: 99.7913 kg

DRUGS (1)
  1. METOLAZONE [Suspect]
     Indication: FLUID RETENTION
     Dosage: 5MG PO
     Route: 048

REACTIONS (9)
  - PAIN [None]
  - DRUG INEFFECTIVE [None]
  - DIARRHOEA [None]
  - CARDIAC FAILURE CONGESTIVE [None]
  - ASTHENIA [None]
  - HYPOAESTHESIA [None]
  - NAUSEA [None]
  - DIZZINESS [None]
  - HEADACHE [None]
